FAERS Safety Report 8660418 (Version 2)
Quarter: 2012Q4

REPORT INFORMATION
  Report Type: Report from Study
  Country: JP (occurrence: JP)
  Receive Date: 20120711
  Receipt Date: 20121004
  Transmission Date: 20130627
  Serious: Yes (Hospitalization)
  Sender: FDA-Public Use
  Company Number: JP-JNJFOC-20110300562

PATIENT
  Age: 72 Year
  Sex: Male
  Weight: 54 kg

DRUGS (11)
  1. REMICADE [Suspect]
     Indication: PSORIATIC ARTHROPATHY
     Route: 042
     Dates: start: 20100527
  2. REMICADE [Suspect]
     Indication: PSORIATIC ARTHROPATHY
     Route: 042
     Dates: start: 20100423
  3. REMICADE [Suspect]
     Indication: PSORIATIC ARTHROPATHY
     Route: 042
     Dates: start: 20100409
  4. RINDERON-V [Concomitant]
     Indication: PSORIATIC ARTHROPATHY
     Route: 003
     Dates: start: 2008
  5. LOCOIDON [Concomitant]
     Indication: PSORIATIC ARTHROPATHY
     Route: 003
     Dates: start: 20090925
  6. PROPETO [Concomitant]
     Indication: PSORIATIC ARTHROPATHY
     Route: 003
     Dates: start: 20100430
  7. ETRETINATE [Concomitant]
     Indication: PSORIATIC ARTHROPATHY
     Route: 048
     Dates: start: 20100610
  8. LORCAM [Concomitant]
     Indication: PSORIATIC ARTHROPATHY
     Route: 048
     Dates: start: 20100720, end: 20100812
  9. CLINORIL [Concomitant]
     Indication: PSORIATIC ARTHROPATHY
     Route: 048
     Dates: start: 20100813
  10. ANTEBATE [Concomitant]
     Indication: PSORIATIC ARTHROPATHY
     Route: 003
  11. DOVONEX [Concomitant]
     Indication: PSORIATIC ARTHROPATHY
     Route: 003

REACTIONS (3)
  - Bronchitis [Recovering/Resolving]
  - Pyrexia [Recovering/Resolving]
  - Pneumonia aspiration [Unknown]
